FAERS Safety Report 5297630-4 (Version None)
Quarter: 2007Q2

REPORT INFORMATION
  Report Type: 
  Country: None (occurrence: None)
  Receive Date: 20070412
  Receipt Date: 20070412
  Transmission Date: 20071010
  Serious: Yes (Other)
  Sender: FDA-Public Use
  Company Number: None

PATIENT
  Sex: Male

DRUGS (1)
  1. MIOCHOL-E (ACETYLCHOLINE INTRAOCULAR SOUTION-1:100 W/ ELEOTROLZTEDILIN [Suspect]
     Dosage: INTRAOCULAR
     Route: 031
     Dates: start: 20070302

REACTIONS (2)
  - CORNEAL OEDEMA [None]
  - PROCEDURAL COMPLICATION [None]
